FAERS Safety Report 10164714 (Version 2)
Quarter: 2014Q2

REPORT INFORMATION
  Report Type: Spontaneous
  Country: US (occurrence: US)
  Receive Date: 20140510
  Receipt Date: 20140510
  Transmission Date: 20141212
  Serious: No
  Sender: FDA-Public Use
  Company Number: US-BRISTOL-MYERS SQUIBB COMPANY-19494194

PATIENT
  Age: 66 Year
  Sex: Female
  Weight: 104.31 kg

DRUGS (2)
  1. BYETTA [Suspect]
     Indication: TYPE 2 DIABETES MELLITUS
     Dosage: BEGAN USING THE 5MCG
  2. METFORMIN HCL [Suspect]
     Dosage: 1DF = 1000 UNITS NOS

REACTIONS (2)
  - Blood glucose increased [Recovered/Resolved]
  - Injection site pain [Unknown]
